FAERS Safety Report 5268947-4 (Version None)
Quarter: 2007Q1

REPORT INFORMATION
  Report Type: 
  Country: None (occurrence: None)
  Receive Date: 20061214
  Receipt Date: 20060612
  Transmission Date: 20070707
  Serious: Yes (Other)
  Sender: FDA-Public Use
  Company Number: 2006074738

PATIENT
  Sex: Female
  Weight: 61.2356 kg

DRUGS (2)
  1. XANAX [Suspect]
     Indication: ANXIETY
     Dates: start: 19960101
  2. ZOLOFT [Concomitant]

REACTIONS (5)
  - CONVULSION [None]
  - DRUG INEFFECTIVE [None]
  - DRUG WITHDRAWAL SYNDROME [None]
  - FEELING ABNORMAL [None]
  - UNEVALUABLE EVENT [None]
